FAERS Safety Report 19608192 (Version 1)
Quarter: 2021Q3

REPORT INFORMATION
  Report Type: Spontaneous
  Country: US (occurrence: US)
  Receive Date: 20210723
  Receipt Date: 20210723
  Transmission Date: 20211014
  Serious: Yes (Hospitalization)
  Sender: FDA-Public Use
  Company Number: None

PATIENT
  Sex: Female

DRUGS (7)
  1. LISINOPRIL TAB 2.5MG [Concomitant]
     Dates: start: 20210722
  2. CAPECITABINE. [Suspect]
     Active Substance: CAPECITABINE
     Indication: RECTAL CANCER
     Route: 048
     Dates: start: 20210722
  3. SENOKOT [Concomitant]
     Active Substance: SENNOSIDES
     Dates: start: 20210722
  4. PANTOPRAZOLE TAB 40MG [Concomitant]
  5. CITRUCEL TAB 500MG [Concomitant]
     Dates: start: 20210722
  6. MULTIPLE VIT TAB [Concomitant]
     Dates: start: 20210722
  7. PEPCID CHW COMPLETE [Concomitant]
     Dates: start: 20210722

REACTIONS (3)
  - Diarrhoea [None]
  - Rash [None]
  - Palmar-plantar erythrodysaesthesia syndrome [None]
